FAERS Safety Report 6155177-7 (Version None)
Quarter: 2009Q2

REPORT INFORMATION
  Report Type: 
  Country: None (occurrence: None)
  Receive Date: 20090415
  Receipt Date: 20090407
  Transmission Date: 20091009
  Serious: Yes (Hospitalization, Other)
  Sender: FDA-Public Use
  Company Number: US-WYE-H08857109

PATIENT
  Sex: Male

DRUGS (4)
  1. EFFEXOR XR [Suspect]
     Indication: DISABILITY
     Dosage: UNKNOWN
     Route: 048
     Dates: start: 20060101, end: 20060101
  2. EFFEXOR XR [Suspect]
     Dosage: INCREASED TO AN UNKNOWN DOSE
     Route: 048
     Dates: start: 20060101, end: 20060101
  3. PRILOSEC [Concomitant]
     Indication: GASTRIC DISORDER
     Dosage: UNKNOWN
  4. SEROQUEL [Suspect]
     Dosage: 1 DOSE

REACTIONS (13)
  - CONVULSION [None]
  - DIZZINESS [None]
  - HEADACHE [None]
  - HYPOTENSION [None]
  - INSOMNIA [None]
  - MEMORY IMPAIRMENT [None]
  - MOVEMENT DISORDER [None]
  - NEURALGIA [None]
  - POOR QUALITY SLEEP [None]
  - PRURITUS [None]
  - SEXUAL DYSFUNCTION [None]
  - SOMNOLENCE [None]
  - UNEVALUABLE EVENT [None]
